FAERS Safety Report 17673242 (Version 1)
Quarter: 2020Q2

REPORT INFORMATION
  Report Type: Spontaneous
  Country: US (occurrence: US)
  Receive Date: 20200415
  Receipt Date: 20200415
  Transmission Date: 20200713
  Serious: No
  Sender: FDA-Public Use
  Company Number: US-TEVA-2020-US-1219571

PATIENT
  Sex: Female
  Weight: 73.94 kg

DRUGS (1)
  1. LIDOCAINE PATCH ACTAVIS [Suspect]
     Active Substance: LIDOCAINE
     Indication: PAIN
     Route: 062

REACTIONS (1)
  - Drug ineffective [Unknown]
